FAERS Safety Report 18860478 (Version 1)
Quarter: 2021Q1

REPORT INFORMATION
  Report Type: Spontaneous
  Country: CN (occurrence: CN)
  Receive Date: 20210208
  Receipt Date: 20210208
  Transmission Date: 20210420
  Serious: Yes (Hospitalization)
  Sender: FDA-Public Use
  Company Number: CN-STRIDES ARCOLAB LIMITED-2021SP001605

PATIENT
  Age: 29 Year
  Sex: Female

DRUGS (4)
  1. LIDOCAINE. [Suspect]
     Active Substance: LIDOCAINE
     Dosage: 3 MILLILITER OF 2 % LIDOCAINE
     Route: 008
  2. LIDOCAINE. [Suspect]
     Active Substance: LIDOCAINE
     Indication: ANAESTHESIA
     Dosage: 3 MILLILITER OF 1 % LIDOCAINE
     Route: 008
  3. IRON COMPLEX [IRON] [Suspect]
     Active Substance: IRON
     Indication: ANAEMIA
     Dosage: UNK
     Route: 048
  4. LIDOCAINE. [Suspect]
     Active Substance: LIDOCAINE
     Dosage: 6 MILLILITER OF 2% LIDOCAINE
     Route: 008

REACTIONS (2)
  - Muscular weakness [Recovered/Resolved]
  - Maternal exposure during pregnancy [Unknown]
